FAERS Safety Report 5415917-9 (Version None)
Quarter: 2007Q3

REPORT INFORMATION
  Report Type: 
  Country: None (occurrence: None)
  Receive Date: 20070815
  Receipt Date: 20070803
  Transmission Date: 20080115
  Serious: Yes (Other)
  Sender: FDA-Public Use
  Company Number: CH-ELI_LILLY_AND_COMPANY-CH200611003511

PATIENT
  Age: 34 Year
  Sex: Female

DRUGS (2)
  1. FLUCTINE [Suspect]
     Dosage: 20 MG, DAILY (1/D)
     Route: 048
     Dates: start: 20060919, end: 20060929
  2. STILNOX                                 /FRA/ [Concomitant]
     Dosage: 10 MG, DAILY (1/D)
     Route: 048
     Dates: start: 20060919, end: 20061008

REACTIONS (1)
  - DRUG EXPOSURE DURING PREGNANCY [None]
